FAERS Safety Report 7151030-0 (Version None)
Quarter: 2010Q4

REPORT INFORMATION
  Report Type: 
  Country: None (occurrence: None)
  Receive Date: 20101210
  Receipt Date: 20101202
  Transmission Date: 20110411
  Serious: Yes (Hospitalization)
  Sender: FDA-Public Use
  Company Number: B0686981A

PATIENT
  Sex: Male

DRUGS (5)
  1. AVANDIA [Suspect]
     Route: 048
     Dates: start: 20090401, end: 20100730
  2. FORTZAAR [Concomitant]
     Route: 065
  3. DIFFU-K [Concomitant]
     Route: 065
  4. TAHOR [Concomitant]
     Route: 065
  5. DELTAZEN [Concomitant]
     Route: 065

REACTIONS (2)
  - ANAEMIA MACROCYTIC [None]
  - APLASTIC ANAEMIA [None]
